FAERS Safety Report 6746807-7 (Version None)
Quarter: 2010Q2

REPORT INFORMATION
  Report Type: 
  Country: None (occurrence: None)
  Receive Date: 20100528
  Receipt Date: 20100119
  Transmission Date: 20101027
  Serious: No
  Sender: FDA-Public Use
  Company Number: A0832515A

PATIENT
  Age: 55 Year
  Sex: Female

DRUGS (12)
  1. VENTOLIN [Suspect]
     Indication: CHRONIC OBSTRUCTIVE PULMONARY DISEASE
     Dosage: 2PUFF FOUR TIMES PER DAY
     Route: 055
     Dates: start: 20080101
  2. PAIN MEDICATION [Concomitant]
  3. MORPHINE [Concomitant]
  4. ALPRAZOLAM [Concomitant]
  5. ENTERIC ASPIRIN [Concomitant]
  6. MARINOL [Concomitant]
     Indication: NAUSEA
  7. STOOL SOFTENERS [Concomitant]
  8. LAXATIVES [Concomitant]
  9. ZOLPIDEM [Concomitant]
  10. PREVACID [Concomitant]
  11. HYDROXYZINE [Concomitant]
  12. NEBULIZER [Concomitant]

REACTIONS (5)
  - DECREASED ACTIVITY [None]
  - DRUG INEFFECTIVE [None]
  - DYSPNOEA [None]
  - OVERDOSE [None]
  - PRODUCT QUALITY ISSUE [None]
